FAERS Safety Report 4420891-8 (Version None)
Quarter: 2004Q3

REPORT INFORMATION
  Report Type: 
  Country: None (occurrence: None)
  Receive Date: 20040809
  Receipt Date: 20040729
  Transmission Date: 20050211
  Serious: Yes (Hospitalization)
  Sender: FDA-Public Use
  Company Number: FR-ROCHE-376234

PATIENT
  Age: 58 Year
  Sex: Female
  Weight: 70 kg

DRUGS (9)
  1. PEGASYS [Suspect]
     Route: 058
     Dates: start: 20040505, end: 20040527
  2. PEGASYS [Suspect]
     Route: 058
  3. REBETOL [Suspect]
     Route: 048
     Dates: start: 20040505, end: 20040528
  4. REBETOL [Suspect]
     Route: 048
  5. RIVOTRIL [Concomitant]
     Route: 048
  6. CALTRATE [Concomitant]
  7. DIDRONEL [Concomitant]
  8. UTEPLEX [Concomitant]
  9. DI-ANTALVIC [Concomitant]

REACTIONS (1)
  - PANCYTOPENIA [None]
